FAERS Safety Report 15101285 (Version 3)
Quarter: 2018Q3

REPORT INFORMATION
  Report Type: Report from Study
  Country: US (occurrence: US)
  Receive Date: 20180703
  Receipt Date: 20180712
  Transmission Date: 20181010
  Serious: Yes (Other)
  Sender: FDA-Public Use
  Company Number: US-GILEAD-2018-0347362

PATIENT
  Age: 78 Year
  Sex: Male
  Weight: 97.51 kg

DRUGS (15)
  1. AMBRISENTAN [Suspect]
     Active Substance: AMBRISENTAN
     Indication: PULMONARY HYPERTENSION
     Dosage: 20 MG, UNK
     Route: 048
     Dates: start: 20180502, end: 20180628
  2. COUMADIN [Concomitant]
     Active Substance: WARFARIN SODIUM
     Dosage: 5 ? 7.5 MG, QD
     Route: 048
  3. NORVASC [Concomitant]
     Active Substance: AMLODIPINE BESYLATE
     Dosage: 5 MG, QD
     Route: 048
  4. ADCIRCA [Concomitant]
     Active Substance: TADALAFIL
     Dosage: 20 MG, BID
     Route: 048
  5. PRILOSEC [Concomitant]
     Active Substance: OMEPRAZOLE MAGNESIUM
  6. AMBRISENTAN [Suspect]
     Active Substance: AMBRISENTAN
     Dosage: 10 MG, QD
     Route: 048
     Dates: start: 20180614, end: 201806
  7. ASPIRIN 81 [Concomitant]
     Active Substance: ASPIRIN
     Dosage: 81 MG, QD
     Route: 048
  8. DAPSONE. [Concomitant]
     Active Substance: DAPSONE
     Dosage: 25 MG, QD
     Route: 048
  9. PRAVACHOL [Concomitant]
     Active Substance: PRAVASTATIN SODIUM
     Dosage: 10 MG, QD
     Route: 048
  10. DELTASONE                          /00016001/ [Concomitant]
     Active Substance: DEXAMETHASONE
  11. SILDENAFIL. [Concomitant]
     Active Substance: SILDENAFIL
  12. PREDNISONE. [Concomitant]
     Active Substance: PREDNISONE
     Dosage: 60 MG, QD
     Route: 048
  13. TYLENOL [Concomitant]
     Active Substance: ACETAMINOPHEN
     Dosage: 650 MG, QD
     Route: 048
  14. PREDNISONE. [Concomitant]
     Active Substance: PREDNISONE
     Dosage: 40 MG, QD
     Route: 065
  15. OXYGEN. [Concomitant]
     Active Substance: OXYGEN
     Dosage: 6 ? 8 L/M

REACTIONS (15)
  - Dyspnoea [Recovered/Resolved]
  - Rash macular [Unknown]
  - Oxygen saturation decreased [Recovering/Resolving]
  - Epistaxis [Recovered/Resolved]
  - Cough [Unknown]
  - Haemoptysis [Recovered/Resolved]
  - Oedema [Recovered/Resolved]
  - Peripheral swelling [Unknown]
  - Oedema peripheral [Recovered/Resolved]
  - Nasal dryness [Unknown]
  - Swelling [Recovered/Resolved]
  - Nasal congestion [Unknown]
  - Weight increased [Unknown]
  - Orthopnoea [Unknown]
  - Sleep disorder [Unknown]

NARRATIVE: CASE EVENT DATE: 201806
